FAERS Safety Report 4644314-9 (Version None)
Quarter: 2005Q2

REPORT INFORMATION
  Report Type: 
  Country: None (occurrence: None)
  Receive Date: 20050331
  Receipt Date: 20041223
  Transmission Date: 20051028
  Serious: No
  Sender: FDA-Public Use
  Company Number: 04P-163-0284924-00

PATIENT
  Age: 45 Year
  Sex: Female
  Weight: 103.6 kg

DRUGS (5)
  1. HUMIRA [Suspect]
     Indication: JUVENILE ARTHRITIS
     Dosage: 40 MG, 1 IN 2 WK, SUBCUTANEOUS
     Route: 058
     Dates: start: 20030301
  2. TERAZOSIN HCL [Concomitant]
  3. ATENOLOL [Concomitant]
  4. LOSARTAN POTASSIUM [Concomitant]
  5. HYDROCHLOROTHIAZIDE [Concomitant]

REACTIONS (1)
  - SWELLING FACE [None]
